FAERS Safety Report 23078753 (Version 1)
Quarter: 2023Q4

REPORT INFORMATION
  Report Type: Report from Study
  Country: TW (occurrence: TW)
  Receive Date: 20231018
  Receipt Date: 20231018
  Transmission Date: 20240109
  Serious: Yes (Hospitalization)
  Sender: FDA-Public Use
  Company Number: TW-PFIZER INC-202200772641

PATIENT
  Age: 67 Year
  Sex: Male
  Weight: 74.2 kg

DRUGS (20)
  1. ELRANATAMAB [Suspect]
     Active Substance: ELRANATAMAB
     Indication: Plasma cell myeloma
     Dosage: 76 MG, WEEKLY
     Route: 058
     Dates: start: 20220204, end: 20220317
  2. ELRANATAMAB [Suspect]
     Active Substance: ELRANATAMAB
     Dosage: 44 MG, WEEKLY
     Route: 058
     Dates: start: 20220414, end: 20220414
  3. ELRANATAMAB [Suspect]
     Active Substance: ELRANATAMAB
     Dosage: 32 MG, WEEKLY
     Route: 058
     Dates: start: 20220428, end: 20220428
  4. MEGESTROL [Concomitant]
     Active Substance: MEGESTROL
     Indication: Decreased appetite
     Dosage: 120 ML, 1X/DAY
     Route: 048
     Dates: start: 20220513, end: 20220523
  5. LORAZEPAM [Concomitant]
     Active Substance: LORAZEPAM
     Indication: Insomnia
     Dosage: 0.5 MG, 1X/DAY
     Route: 048
     Dates: start: 20220511, end: 20220707
  6. CHLORPHENIRAMINE [Concomitant]
     Active Substance: CHLORPHENIRAMINE
     Indication: Prophylaxis
     Dosage: 5 MG, ONCE, INTRAVASCULAR
     Dates: start: 20220514, end: 20220514
  7. CHLORPHENIRAMINE [Concomitant]
     Active Substance: CHLORPHENIRAMINE
     Dosage: 5 MG, ONCE, INTRAVASCULAR
     Dates: start: 20220516, end: 20220516
  8. CHLORPHENIRAMINE [Concomitant]
     Active Substance: CHLORPHENIRAMINE
     Dosage: 5 MG, ONCE
     Route: 030
     Dates: start: 20220519, end: 20220519
  9. SILODOSIN [Concomitant]
     Active Substance: SILODOSIN
     Indication: Urinary retention
     Dosage: 8 MG, 1X/DAY
     Route: 048
     Dates: start: 20220519
  10. SILODOSIN [Concomitant]
     Active Substance: SILODOSIN
     Indication: Benign prostatic hyperplasia
  11. MOMETASONE FUROATE [Concomitant]
     Active Substance: MOMETASONE FUROATE
     Indication: Productive cough
     Dosage: 1 SPRAY, 1X/DAY
     Route: 045
     Dates: start: 20220516, end: 20220707
  12. POTASSIUM GLUCONATE [Concomitant]
     Active Substance: POTASSIUM GLUCONATE
     Indication: Hypokalaemia
     Dosage: 1785 MG, 3X/DAY
     Route: 048
     Dates: start: 20220514, end: 20220519
  13. NEOMYCIN [Concomitant]
     Active Substance: NEOMYCIN
     Indication: Radiation skin injury
     Dosage: 1 APPLICATION, 2X/DAY
     Route: 061
     Dates: start: 20220509, end: 20220531
  14. ACETYLCYSTEINE [Concomitant]
     Active Substance: ACETYLCYSTEINE
     Indication: Productive cough
     Dosage: 200 MG, 3X/DAY
     Route: 048
     Dates: start: 20220428, end: 20220606
  15. ZINC OXIDE [Concomitant]
     Active Substance: ZINC OXIDE
     Indication: Haemorrhoids
     Dosage: 1 APPLICATION, 2X/DAY
     Route: 061
     Dates: start: 20220514, end: 20220707
  16. LEVOCETIRIZINE [Concomitant]
     Active Substance: LEVOCETIRIZINE
     Indication: Productive cough
     Dosage: 5 MG, 1X/DAY
     Route: 048
     Dates: start: 20220505, end: 20220512
  17. FUROSEMIDE [Concomitant]
     Active Substance: FUROSEMIDE
     Indication: Prophylaxis
     Dosage: 20 MG, ONCE, INTRAVASCULAR
     Dates: start: 20220519, end: 20220519
  18. VALACYCLOVIR HYDROCHLORIDE [Concomitant]
     Active Substance: VALACYCLOVIR HYDROCHLORIDE
     Indication: Prophylaxis
     Dosage: 500 MG, 2X/WEEK
     Route: 048
     Dates: start: 20220421, end: 20220512
  19. CEFUROXIME [Concomitant]
     Active Substance: CEFUROXIME
     Indication: Prophylaxis
     Dosage: 500 MG, 2X/DAY
     Route: 048
     Dates: start: 20220523, end: 20220528
  20. LINAGLIPTIN [Concomitant]
     Active Substance: LINAGLIPTIN
     Indication: Diabetes mellitus
     Dosage: 5 MG, 1X/DAY
     Route: 048
     Dates: start: 20220105, end: 20221129

REACTIONS (3)
  - Febrile neutropenia [Recovered/Resolved]
  - Upper respiratory tract infection [Recovered/Resolved]
  - Cytomegalovirus viraemia [Recovered/Resolved]

NARRATIVE: CASE EVENT DATE: 20220508
